FAERS Safety Report 7786810-1 (Version None)
Quarter: 2011Q3

REPORT INFORMATION
  Report Type: 
  Country: None (occurrence: None)
  Receive Date: 20110928
  Receipt Date: 20110928
  Transmission Date: 20111222
  Serious: Yes (Hospitalization)
  Sender: FDA-Public Use
  Company Number: None

PATIENT
  Sex: Female
  Weight: 135.17 kg

DRUGS (5)
  1. CYCLOPHOSPHAMIDE [Suspect]
     Dosage: 2440 MG
  2. MERCAPTOPURINE [Suspect]
     Dosage: 2100 MG
  3. CYTARABINE [Suspect]
     Dosage: 1484 MG
  4. METHOTREXATE [Suspect]
     Dosage: 45 MG
  5. PEG-L-ASPARAGINASE (K-H) [Suspect]
     Dosage: 6225 IU

REACTIONS (1)
  - FEBRILE NEUTROPENIA [None]
